FAERS Safety Report 6120663-2 (Version None)
Quarter: 2009Q1

REPORT INFORMATION
  Report Type: 
  Country: None (occurrence: None)
  Receive Date: 20090312
  Receipt Date: 20090312
  Transmission Date: 20090719
  Serious: Yes (Other)
  Sender: FDA-Public Use
  Company Number: None

PATIENT
  Age: 76 Year
  Sex: Male
  Weight: 67.586 kg

DRUGS (1)
  1. FLUDARA [Suspect]
     Indication: LYMPHOMA
     Dosage: 26 MG EVERY 3 WEEKS IV
     Route: 042
     Dates: start: 20081104, end: 20090306

REACTIONS (3)
  - FLUID INTAKE REDUCED [None]
  - NAUSEA [None]
  - VOMITING [None]
